FAERS Safety Report 7244591-4 (Version None)
Quarter: 2011Q1

REPORT INFORMATION
  Report Type: 
  Country: None (occurrence: None)
  Receive Date: 20110125
  Receipt Date: 20110112
  Transmission Date: 20110831
  Serious: Yes (Life-Threatening, Hospitalization, Other)
  Sender: FDA-Public Use
  Company Number: FR-PFIZER INC-2011017347

PATIENT
  Age: 82 Year
  Sex: Male

DRUGS (14)
  1. BUDESONIDE/FORMOTEROL FUMARATE [Concomitant]
     Dosage: UNK
  2. CORDARONE [Suspect]
     Indication: CARDIAC FAILURE
     Dosage: 200 MILLIGRAM(S);DAILY
     Route: 048
     Dates: end: 20101209
  3. SPIRIVA [Concomitant]
     Dosage: UNK
  4. IVABRADINE [Suspect]
     Indication: CARDIAC FAILURE
     Dosage: 5 MG, 1X/DAY
     Dates: end: 20101209
  5. DOLIPRANE [Concomitant]
     Dosage: UNK
  6. NOCTRAN 10 [Concomitant]
     Dosage: UNK
  7. LASIX [Suspect]
     Indication: PRODUCT USED FOR UNKNOWN INDICATION
     Dosage: UNKNOWN
     Route: 048
     Dates: end: 20101209
  8. DIGOXIN [Suspect]
     Indication: CARDIAC FAILURE
     Dosage: 0.25 MILLIGRAM(S);DAILY
     Route: 048
     Dates: end: 20101209
  9. RAMIPRIL [Suspect]
     Indication: CARDIAC FAILURE
     Dosage: UNKNOWN
     Route: 048
     Dates: end: 20101209
  10. ALLOPURINOL [Concomitant]
     Dosage: UNK
  11. XYZAL [Concomitant]
     Dosage: UNK
  12. KARDEGIC [Concomitant]
     Dosage: UNK
     Dates: end: 20101210
  13. FENOFIBRATE [Concomitant]
     Dosage: UNK
  14. BRONCHODUAL [Concomitant]
     Dosage: UNK

REACTIONS (5)
  - RENAL FAILURE ACUTE [None]
  - DRUG INTERACTION [None]
  - BRADYCARDIA [None]
  - THROMBOCYTOPENIA [None]
  - BLINDNESS UNILATERAL [None]
